FAERS Safety Report 24605693 (Version 2)
Quarter: 2024Q4

REPORT INFORMATION
  Report Type: Report from Study
  Country: CA (occurrence: CA)
  Receive Date: 20241111
  Receipt Date: 20241114
  Transmission Date: 20250115
  Serious: Yes (Hospitalization)
  Sender: LUNDBECK
  Company Number: CA-LUNDBECK-DKLU4000341

PATIENT

DRUGS (16)
  1. VYEPTI [Suspect]
     Active Substance: EPTINEZUMAB-JJMR
     Indication: Migraine
     Dosage: 100 MILLIGRAM
     Route: 041
     Dates: start: 20240522, end: 20240814
  2. VYEPTI [Suspect]
     Active Substance: EPTINEZUMAB-JJMR
     Dosage: 300 MILLIGRAM
     Route: 041
     Dates: start: 20240814, end: 20241112
  3. UBRELVY [Concomitant]
     Active Substance: UBROGEPANT
     Indication: Migraine
     Dosage: 100 MILLIGRAM
     Dates: start: 20240510, end: 20240522
  4. UBRELVY [Concomitant]
     Active Substance: UBROGEPANT
     Dosage: 100 MILLIGRAM
  5. ZOMIG [Concomitant]
     Active Substance: ZOLMITRIPTAN
     Indication: Product used for unknown indication
     Dosage: 5 MILLIGRAM
     Route: 045
  6. ZOPICLONE [Concomitant]
     Active Substance: ZOPICLONE
     Indication: Product used for unknown indication
     Dosage: 3.75 MILLIGRAM
  7. VITAMIN C [Concomitant]
     Active Substance: ASCORBIC ACID
     Indication: Product used for unknown indication
     Dosage: 2000 MILLIGRAM
  8. FISH OIL [Concomitant]
     Active Substance: FISH OIL
     Indication: Product used for unknown indication
     Dosage: 225 MILLIGRAM
  9. RIBES NIGRUM [Concomitant]
     Indication: Product used for unknown indication
     Dosage: 15 DROP (1/12 MILLILITRE)
  10. VITAMIN D3 [Concomitant]
     Active Substance: CHOLECALCIFEROL
     Indication: Product used for unknown indication
     Dosage: 7500 INTERNATIONAL UNIT
  11. MENAQUINONE 6 [Concomitant]
     Active Substance: MENAQUINONE 6
     Indication: Product used for unknown indication
     Dosage: 120 MICROGRAM
  12. COMPLEX B [BIOTIN;CALCIUM PANTOTHENATE;CYANOCOBALAMIN;FOLIC ACID;NICOT [Concomitant]
     Indication: Product used for unknown indication
  13. MAGNESIUM CARBONATE [Concomitant]
     Active Substance: MAGNESIUM CARBONATE
     Indication: Product used for unknown indication
  14. VITAMIN E [Concomitant]
     Active Substance: .ALPHA.-TOCOPHEROL
     Indication: Product used for unknown indication
     Dosage: 400 INTERNATIONAL UNIT
  15. GINKGO [Concomitant]
     Active Substance: GINKGO
     Indication: Product used for unknown indication
     Dosage: 120 MILLIGRAM
  16. B2 SUPPORT [Concomitant]
     Indication: Product used for unknown indication

REACTIONS (5)
  - Migraine [Unknown]
  - Therapeutic response delayed [Unknown]
  - Vomiting [Unknown]
  - Drug effect less than expected [Unknown]
  - Drug ineffective [Unknown]
